FAERS Safety Report 11343725 (Version 1)
Quarter: 2015Q3

REPORT INFORMATION
  Report Type: Spontaneous
  Country: US (occurrence: None)
  Receive Date: 20150804
  Receipt Date: 20150804
  Transmission Date: 20151125
  Serious: Yes (Death)
  Sender: FDA-Public Use
  Company Number: None

PATIENT
  Age: 24 Year
  Sex: Male
  Weight: 83.92 kg

DRUGS (3)
  1. TRIAMCINOLONE [Concomitant]
     Active Substance: TRIAMCINOLONE
  2. PERMETHRIN. [Concomitant]
     Active Substance: PERMETHRIN
  3. LEVOCETIRIZINE 5MG GLENMARK [Suspect]
     Active Substance: LEVOCETIRIZINE
     Indication: RASH
     Route: 048
     Dates: start: 20150723, end: 20150727

REACTIONS (4)
  - Feeling abnormal [None]
  - Mental disorder [None]
  - Gun shot wound [None]
  - Completed suicide [None]

NARRATIVE: CASE EVENT DATE: 20150728
